FAERS Safety Report 10173016 (Version 1)
Quarter: 2014Q2

REPORT INFORMATION
  Report Type: Spontaneous
  Country: US (occurrence: None)
  Receive Date: 20140415
  Receipt Date: 20140415
  Transmission Date: 20141212
  Serious: Yes (Other)
  Sender: FDA-Public Use
  Company Number: ALL1-2013-08679

PATIENT
  Age: 55 Year
  Sex: Male

DRUGS (5)
  1. VYVANSE [Suspect]
     Indication: PRODUCT USED FOR UNKNOWN INDICATION
     Route: 048
  2. BUSPAR (BUSPIRONE HYDROCHLORIDE) [Concomitant]
  3. LAMICTAL (LAMOTRIGINE) [Concomitant]
  4. ABILIFY (ARIPIPRAZOLE) [Concomitant]
  5. LEXAPRO /01588501/ (ESCITALOPRAM) [Concomitant]

REACTIONS (1)
  - Hallucination, tactile [None]
